FAERS Safety Report 10561772 (Version 1)
Quarter: 2014Q4

REPORT INFORMATION
  Report Type: Spontaneous
  Country: US (occurrence: US)
  Receive Date: 20141103
  Receipt Date: 20141103
  Transmission Date: 20150529
  Serious: No
  Sender: FDA-Public Use
  Company Number: US-PFIZER INC-2014296926

PATIENT
  Age: 77 Year
  Sex: Female
  Weight: 82.1 kg

DRUGS (3)
  1. AROMASIN [Suspect]
     Active Substance: EXEMESTANE
     Indication: INVASIVE DUCTAL BREAST CARCINOMA
     Dosage: 25 MG, 1X/DAY
     Route: 048
     Dates: start: 201304
  2. NADOLOL. [Concomitant]
     Active Substance: NADOLOL
     Dosage: 40 MG, DAILY
  3. WARFARIN [Concomitant]
     Active Substance: WARFARIN
     Dosage: 2.5 MG WITH 5 MG ONCE A WEEK

REACTIONS (7)
  - Vertigo [Unknown]
  - Arthralgia [Unknown]
  - Meniscus injury [Unknown]
  - Fatigue [Unknown]
  - Alopecia [Unknown]
  - Feeling abnormal [Recovered/Resolved]
  - Cardiac disorder [Unknown]

NARRATIVE: CASE EVENT DATE: 2013
